FAERS Safety Report 7894310-3 (Version None)
Quarter: 2011Q4

REPORT INFORMATION
  Report Type: 
  Country: None (occurrence: None)
  Receive Date: 20111104
  Receipt Date: 20111026
  Transmission Date: 20120403
  Serious: Yes (Hospitalization)
  Sender: FDA-Public Use
  Company Number: US-ASTRAZENECA-2011SE64796

PATIENT
  Age: 82 Year
  Sex: Female
  Weight: 73.5 kg

DRUGS (6)
  1. NEXIUM [Suspect]
     Indication: GASTROOESOPHAGEAL REFLUX DISEASE
     Route: 048
  2. LIPITOR [Concomitant]
  3. VITAMIN TAB [Concomitant]
  4. XANAX [Concomitant]
  5. ELAVIL [Concomitant]
  6. LAVOXIL [Interacting]
     Route: 065

REACTIONS (11)
  - INFECTION [None]
  - DIARRHOEA [None]
  - ABDOMINAL DISCOMFORT [None]
  - HYPERTENSION [None]
  - DRUG DOSE OMISSION [None]
  - REGURGITATION [None]
  - POOR QUALITY SLEEP [None]
  - FATIGUE [None]
  - ERUCTATION [None]
  - DRUG INTERACTION [None]
  - CONSTIPATION [None]
